FAERS Safety Report 19342231 (Version 2)
Quarter: 2021Q3

REPORT INFORMATION
  Report Type: Spontaneous
  Country: IE (occurrence: IE)
  Receive Date: 20210530
  Receipt Date: 20210906
  Transmission Date: 20211014
  Serious: Yes (Hospitalization, Other)
  Sender: FDA-Public Use
  Company Number: IE-JNJFOC-20210547968

PATIENT
  Age: 11 Year
  Sex: Male

DRUGS (1)
  1. VERMOX [Suspect]
     Active Substance: MEBENDAZOLE
     Indication: ENTEROBIASIS
     Dosage: ONE DOSE ADMINISTERED
     Route: 048
     Dates: start: 20210210

REACTIONS (9)
  - Lethargy [Recovered/Resolved]
  - Confusional state [Recovered/Resolved]
  - Emotional distress [Recovered/Resolved]
  - Disorientation [Recovered/Resolved]
  - Vision blurred [Recovered/Resolved]
  - Dizziness [Recovered/Resolved]
  - Panic reaction [Recovered/Resolved]
  - Vomiting [Recovered/Resolved]
  - Gait disturbance [Recovered/Resolved]

NARRATIVE: CASE EVENT DATE: 20210210
